FAERS Safety Report 8517046 (Version 2)
Quarter: 2013Q3

REPORT INFORMATION
  Report Type: Report from Study
  Country: MX (occurrence: MX)
  Receive Date: 20120417
  Receipt Date: 20130711
  Transmission Date: 20140515
  Serious: Yes (Other)
  Sender: FDA-Public Use
  Company Number: PHHY2012MX031660

PATIENT
  Age: 77 Year
  Sex: Male

DRUGS (5)
  1. CO-DIOVAN [Suspect]
     Indication: HYPERTENSION
     Dosage: 1 DF (160 MG VALS, 12.5 MG HYDR), DAILY
     Route: 048
  2. CO-PLAVIX [Concomitant]
     Dosage: UNK UKN, UNK
  3. LOPRESOR [Concomitant]
     Dosage: UNK UKN, UNK
  4. PRESONE [Concomitant]
     Dosage: UNK UKN, UNK
  5. LIPITOR [Concomitant]
     Dosage: UNK UKN, UNK

REACTIONS (2)
  - Infarction [Recovered/Resolved]
  - Cardiovascular disorder [Recovered/Resolved]
